FAERS Safety Report 4713946-1 (Version None)
Quarter: 2005Q3

REPORT INFORMATION
  Report Type: 
  Country: None (occurrence: None)
  Receive Date: 20050713
  Receipt Date: 20050624
  Transmission Date: 20060218
  Serious: Yes (Hospitalization, Other)
  Sender: FDA-Public Use
  Company Number: DE_050616270

PATIENT
  Age: 35 Year
  Sex: Female

DRUGS (5)
  1. ZYPREXA [Suspect]
     Indication: BIPOLAR DISORDER
     Dosage: 5 MG DAY
     Route: 048
  2. ZYPREXA [Suspect]
     Indication: PSYCHOTIC DISORDER
     Dosage: 5 MG DAY
     Route: 048
  3. SAROTEN            (AMITRIOTYLINE HYDROCHLORIDE) [Concomitant]
  4. ORFIRIL                   (VALPROIC ACID [Concomitant]
  5. LORAZEPAM [Concomitant]

REACTIONS (6)
  - ANAL FISSURE [None]
  - BLADDER DISORDER [None]
  - CONSTIPATION [None]
  - COORDINATION ABNORMAL [None]
  - DRY MOUTH [None]
  - TREMOR [None]
